FAERS Safety Report 5835569-3 (Version None)
Quarter: 2008Q3

REPORT INFORMATION
  Report Type: 
  Country: None (occurrence: None)
  Receive Date: 20080806
  Receipt Date: 20080731
  Transmission Date: 20090109
  Serious: Yes (Disabling)
  Sender: FDA-Public Use
  Company Number: B0531578A

PATIENT
  Age: 15 Month
  Sex: Male

DRUGS (1)
  1. AUGMENTIN '125' [Suspect]
     Indication: UPPER RESPIRATORY TRACT INFECTION
     Route: 048
     Dates: start: 20080628, end: 20080630

REACTIONS (5)
  - ECZEMA [None]
  - RASH MACULO-PAPULAR [None]
  - SERUM SICKNESS [None]
  - SKIN EXFOLIATION [None]
  - SKIN LESION [None]
